FAERS Safety Report 11926699 (Version 1)
Quarter: 2016Q1

REPORT INFORMATION
  Report Type: Spontaneous
  Country: US (occurrence: None)
  Receive Date: 20160115
  Receipt Date: 20160115
  Transmission Date: 20160526
  Serious: Yes (Hospitalization)
  Sender: FDA-Public Use
  Company Number: None

PATIENT
  Age: 69 Year
  Sex: Male
  Weight: 70.2 kg

DRUGS (1)
  1. OBINUTUZUMAB [Suspect]
     Active Substance: OBINUTUZUMAB
     Indication: CHRONIC LYMPHOCYTIC LEUKAEMIA
     Dosage: 100 MG ONCE IV
     Route: 042
     Dates: start: 20160113, end: 20160113

REACTIONS (5)
  - Erythema multiforme [None]
  - Rash [None]
  - Chills [None]
  - Cough [None]
  - Flushing [None]

NARRATIVE: CASE EVENT DATE: 20160113
